FAERS Safety Report 9372870 (Version 1)
Quarter: 2013Q2

REPORT INFORMATION
  Report Type: Report from Study
  Country: AU (occurrence: AU)
  Receive Date: 20130627
  Receipt Date: 20130627
  Transmission Date: 20140414
  Serious: Yes (Other)
  Sender: FDA-Public Use
  Company Number: PHHY2013AU066087

PATIENT
  Age: 36 Year
  Sex: Male

DRUGS (1)
  1. ACLASTA [Suspect]
     Dosage: 5 MG / 100 ML
     Route: 042
     Dates: start: 20120626

REACTIONS (1)
  - Lower respiratory tract infection [Unknown]
